FAERS Safety Report 10216326 (Version 2)
Quarter: 2014Q3

REPORT INFORMATION
  Report Type: Spontaneous
  Country: CH (occurrence: CH)
  Receive Date: 20140604
  Receipt Date: 20140709
  Transmission Date: 20150326
  Serious: Yes (Hospitalization)
  Sender: FDA-Public Use
  Company Number: CH-PFIZER INC-2014146971

PATIENT
  Age: 47 Year
  Sex: Female
  Weight: 100 kg

DRUGS (4)
  1. CIPRALEX [Interacting]
     Active Substance: ESCITALOPRAM OXALATE
     Indication: ANXIETY DISORDER
     Dosage: 10 MG, DAILY
     Route: 048
     Dates: start: 201309, end: 20131112
  2. CIPRALEX [Interacting]
     Active Substance: ESCITALOPRAM OXALATE
     Indication: AGGRESSION
     Dosage: 20 MG, 1X/DAY
     Route: 048
     Dates: start: 20131113
  3. LYRICA [Interacting]
     Active Substance: PREGABALIN
     Dosage: UNK
     Route: 048
     Dates: start: 20140323
  4. LYRICA [Suspect]
     Active Substance: PREGABALIN
     Indication: ANXIETY DISORDER
     Dosage: 75 MG, 2X/DAY
     Route: 048
     Dates: start: 201209, end: 20140322

REACTIONS (8)
  - Skin infection [Recovered/Resolved]
  - Localised infection [Recovered/Resolved]
  - Libido decreased [Not Recovered/Not Resolved]
  - Weight increased [Not Recovered/Not Resolved]
  - Obesity [Not Recovered/Not Resolved]
  - Aggression [Unknown]
  - Drug interaction [Unknown]
  - Irritability [Unknown]

NARRATIVE: CASE EVENT DATE: 2013
